FAERS Safety Report 22228520 (Version 1)
Quarter: 2023Q2

REPORT INFORMATION
  Report Type: Spontaneous
  Country: US (occurrence: None)
  Receive Date: 20230418
  Receipt Date: 20230418
  Transmission Date: 20230721
  Serious: Yes (Other)
  Sender: FDA-Public Use
  Company Number: None

PATIENT
  Age: 67 Year
  Sex: Female
  Weight: 102.6 kg

DRUGS (14)
  1. POMALYST [Suspect]
     Active Substance: POMALIDOMIDE
     Indication: Plasma cell myeloma
     Dosage: FREQUENCY : DAILY;?
     Route: 048
     Dates: start: 20210712
  2. alprazolam 0.5 mg tablet [Concomitant]
  3. amlodipine 5 mg table [Concomitant]
  4. aspirin 81 mg capsule [Concomitant]
  5. DEXAMETHASONE [Concomitant]
     Active Substance: DEXAMETHASONE
  6. hydralazine 100 mg tablet [Concomitant]
  7. levothyroxine 200 mcg table [Concomitant]
  8. LOSARTAN POTASSIUM [Concomitant]
     Active Substance: LOSARTAN POTASSIUM
  9. nebivolol 20 mg tablet [Concomitant]
  10. oxycodone 20 mg table [Concomitant]
  11. venlafaxine ER 150 mg capsule,extended release 24 hr [Concomitant]
  12. Vitamin D3 25 mcg (1,000 unit) table [Concomitant]
  13. Xtampza ER 36 mg capsule sprinkle [Concomitant]
  14. Potassium 10 meq [Concomitant]

REACTIONS (2)
  - Muscle spasms [None]
  - Alopecia [None]

NARRATIVE: CASE EVENT DATE: 20230418
